FAERS Safety Report 5528742-5 (Version None)
Quarter: 2007Q4

REPORT INFORMATION
  Report Type: 
  Country: None (occurrence: None)
  Receive Date: 20071129
  Receipt Date: 20071121
  Transmission Date: 20080405
  Serious: Yes (Other)
  Sender: FDA-Public Use
  Company Number: US-ASTRAZENECA-2007UW26841

PATIENT
  Age: 66 Year
  Sex: Female
  Weight: 59.4 kg

DRUGS (6)
  1. ARIMIDEX [Suspect]
     Indication: BREAST CANCER STAGE I
     Route: 048
  2. VITAMIN D [Concomitant]
  3. VITAMIN E [Concomitant]
  4. OSCAL [Concomitant]
  5. FORTICOL [Concomitant]
  6. ONE A DAY VITAMIN [Concomitant]

REACTIONS (7)
  - EAR DISORDER [None]
  - EAR HAEMORRHAGE [None]
  - ILL-DEFINED DISORDER [None]
  - NASAL DISCOMFORT [None]
  - NASAL MUCOSAL DISCOLOURATION [None]
  - OSTEOPENIA [None]
  - OSTEOPOROSIS [None]
